FAERS Safety Report 4637270-0 (Version None)
Quarter: 2005Q2

REPORT INFORMATION
  Report Type: 
  Country: None (occurrence: None)
  Receive Date: 20050418
  Receipt Date: 20050405
  Transmission Date: 20051028
  Serious: Yes (Hospitalization, Other)
  Sender: FDA-Public Use
  Company Number: IE-JNJFOC-20050402674

PATIENT
  Age: 23 Year
  Sex: Female

DRUGS (2)
  1. INFLIXIMAB [Suspect]
     Indication: CROHN'S DISEASE
     Dosage: PATIENT COMPLETED AN INDUCTION REGIME
     Route: 042
  2. AZATHIOPRINE [Concomitant]
     Dosage: 1 YEAR DURATION

REACTIONS (4)
  - LYMPHADENOPATHY [None]
  - NECROSIS [None]
  - SARCOIDOSIS [None]
  - TUBERCULOSIS [None]
